FAERS Safety Report 6468905-8 (Version None)
Quarter: 2009Q4

REPORT INFORMATION
  Report Type: 
  Country: None (occurrence: None)
  Receive Date: 20091203
  Receipt Date: 20080227
  Transmission Date: 20100525
  Serious: No
  Sender: FDA-Public Use
  Company Number: JP-ELI_LILLY_AND_COMPANY-JP_050606747

PATIENT
  Age: 65 Year
  Sex: Female

DRUGS (7)
  1. ZYPREXA [Suspect]
     Indication: SCHIZOPHRENIA
     Dosage: 5 MG, DAILY (1/D)
     Route: 048
     Dates: start: 20050101, end: 20050101
  2. ZYPREXA [Suspect]
     Dosage: 10 MG, DAILY (1/D)
     Route: 048
     Dates: start: 20050101, end: 20050101
  3. DOGMATYL [Concomitant]
     Dosage: UNK, UNKNOWN
     Route: 048
  4. PAXIL [Concomitant]
     Dosage: UNK, UNKNOWN
     Route: 048
  5. MEILAX [Concomitant]
     Dosage: UNK, UNKNOWN
     Route: 048
  6. MIANSERIN [Concomitant]
     Route: 065
  7. AMITRIPTYLINE [Concomitant]
     Route: 065

REACTIONS (1)
  - DEEP VEIN THROMBOSIS [None]
